FAERS Safety Report 4351851-3 (Version None)
Quarter: 2004Q2

REPORT INFORMATION
  Report Type: 
  Country: None (occurrence: None)
  Receive Date: 20040428
  Receipt Date: 20040419
  Transmission Date: 20050107
  Serious: Yes (Hospitalization)
  Sender: FDA-Public Use
  Company Number: S04-USA-02240-01

PATIENT
  Age: 20 Year
  Sex: Female

DRUGS (2)
  1. LEXAPRO [Suspect]
     Indication: DEPRESSION
     Dosage: 10 MG QD PO
     Route: 048
  2. BIRTH CONTROL PILLS (NOS) [Concomitant]

REACTIONS (3)
  - MYDRIASIS [None]
  - TREMOR [None]
  - VISUAL ACUITY REDUCED [None]
